FAERS Safety Report 7412454-7 (Version None)
Quarter: 2011Q2

REPORT INFORMATION
  Report Type: 
  Country: None (occurrence: None)
  Receive Date: 20110413
  Receipt Date: 20110401
  Transmission Date: 20111010
  Serious: Yes (Hospitalization, Other)
  Sender: FDA-Public Use
  Company Number: PHHY2010CA65337

PATIENT
  Sex: Female

DRUGS (3)
  1. SANDOSTATIN LAR [Suspect]
     Indication: HEPATIC CANCER METASTATIC
     Dosage: 20 MG, EVERY 4 WEEKS
     Route: 030
     Dates: start: 20100623
  2. SANDOSTATIN LAR [Suspect]
     Dosage: 20 MG, QMO
     Route: 030
     Dates: start: 20110111
  3. SANDOSTATIN LAR [Suspect]
     Dosage: 30 MG, EVERY FOUR WEEKS
     Route: 030

REACTIONS (13)
  - DYSPNOEA [None]
  - DIABETES MELLITUS [None]
  - NASOPHARYNGITIS [None]
  - ASTHENIA [None]
  - NAUSEA [None]
  - HYPOGLYCAEMIA [None]
  - DRUG INEFFECTIVE [None]
  - ASCITES [None]
  - DIZZINESS [None]
  - COUGH [None]
  - NASAL CONGESTION [None]
  - VOMITING [None]
  - HEART RATE INCREASED [None]
